FAERS Safety Report 15371182 (Version 1)
Quarter: 2018Q3

REPORT INFORMATION
  Report Type: Spontaneous
  Country: JP (occurrence: JP)
  Receive Date: 20180911
  Receipt Date: 20180911
  Transmission Date: 20181010
  Serious: Yes (Hospitalization)
  Sender: FDA-Public Use
  Company Number: JP-SA-2018SA246730

PATIENT
  Age: 72 Year

DRUGS (6)
  1. AMINOLEBAN [Suspect]
     Active Substance: AMINO ACIDS
  2. TS?1 [Suspect]
     Active Substance: GIMERACIL\OTERACIL\TEGAFUR
     Dosage: 60 UNK
     Route: 048
     Dates: start: 20141116, end: 20141116
  3. ELPLAT [Suspect]
     Active Substance: OXALIPLATIN
     Indication: COLON CANCER
     Dosage: 220 MG, QCY
     Route: 041
     Dates: start: 20140619, end: 20140619
  4. TS?1 [Suspect]
     Active Substance: GIMERACIL\OTERACIL\TEGAFUR
     Indication: COLON CANCER
     Dosage: 60 MG, BID
     Route: 048
     Dates: start: 20140619, end: 20140619
  5. TS?1 [Suspect]
     Active Substance: GIMERACIL\OTERACIL\TEGAFUR
     Dosage: 60 UNK
     Route: 048
     Dates: start: 20141111, end: 20141111
  6. ELPLAT [Suspect]
     Active Substance: OXALIPLATIN
     Dosage: 220 MG, QD
     Route: 041
     Dates: start: 20141111, end: 20141111

REACTIONS (3)
  - Amnesia [Recovering/Resolving]
  - Ammonia increased [Recovering/Resolving]
  - Blood bilirubin increased [Recovering/Resolving]

NARRATIVE: CASE EVENT DATE: 20141115
